FAERS Safety Report 19295286 (Version 2)
Quarter: 2021Q4

REPORT INFORMATION
  Report Type: Spontaneous
  Country: JP (occurrence: JP)
  Receive Date: 20210524
  Receipt Date: 20211207
  Transmission Date: 20220303
  Serious: Yes (Hospitalization, Other)
  Sender: FDA-Public Use
  Company Number: JP-KYOWAKIRIN-2020AKK017103

PATIENT
  Age: 78 Year
  Sex: Female

DRUGS (51)
  1. PEGFILGRASTIM [Suspect]
     Active Substance: PEGFILGRASTIM
     Indication: Colony stimulating factor therapy
     Dosage: 3.6 MILLIGRAM
     Route: 058
     Dates: start: 20161013, end: 20161013
  2. DEXAMETHASONE SODIUM PHOSPHATE [Suspect]
     Active Substance: DEXAMETHASONE SODIUM PHOSPHATE
     Indication: Product used for unknown indication
     Dosage: 6.6 MILLIGRAM
     Route: 041
     Dates: start: 20161011, end: 20161011
  3. DECADRON [Suspect]
     Active Substance: DEXAMETHASONE
     Indication: Skin disorder prophylaxis
     Dosage: 2 MG, QD, AFTER BREAKFAST
     Route: 048
     Dates: start: 20161012, end: 20161013
  4. PREDONINE [Suspect]
     Active Substance: PREDNISOLONE
     Indication: Aortitis
     Dosage: 25 MILLIGRAM, BID (AFTER BREAKFAST AND LUNCH)
     Route: 048
     Dates: start: 20161027, end: 20161102
  5. PREDONINE [Suspect]
     Active Substance: PREDNISOLONE
     Dosage: 20 MILLIGRAM, BID (AFTER BREAKFAST AND LUNCH)
     Route: 048
     Dates: start: 20161103, end: 20161116
  6. PREDONINE [Suspect]
     Active Substance: PREDNISOLONE
     Dosage: 15 MILLIGRAM, BID (IMMEDIATELY AFTER BREAKFAST, LUNCH)
     Route: 048
     Dates: start: 20161117, end: 20161120
  7. PREDONINE [Suspect]
     Active Substance: PREDNISOLONE
     Dosage: 15 MILLIGRAM, BID (IMMEDIATELY BEFORE BREAKFAST, LUNCH)
     Route: 048
     Dates: start: 20161120, end: 20161128
  8. PREDONINE [Suspect]
     Active Substance: PREDNISOLONE
     Dosage: 15 MG IN THE MORNING, 10 MG AT LUNCH (IMMEDIATELY BEFORE MEALS)
     Route: 048
     Dates: start: 20161129, end: 20161212
  9. PREDONINE [Suspect]
     Active Substance: PREDNISOLONE
     Dosage: 10 MG, BID (AFTER BREAKFAST AND LUNCH)
     Route: 048
     Dates: start: 20161213, end: 20161226
  10. PREDONINE [Suspect]
     Active Substance: PREDNISOLONE
     Dosage: 10 MG IN THE MORNING, 7.5 MG AT LUNCH (AFTER MEALS)
     Route: 048
     Dates: start: 20161227, end: 20170109
  11. PREDONINE [Suspect]
     Active Substance: PREDNISOLONE
     Dosage: 15 MG, QD AFTER BREAKFAST
     Route: 048
     Dates: start: 20170110, end: 20170206
  12. PREDONINE [Suspect]
     Active Substance: PREDNISOLONE
     Dosage: 12.5 MG, QD AFTER BREAKFAST
     Route: 048
     Dates: start: 20170206, end: 20170305
  13. PREDONINE [Suspect]
     Active Substance: PREDNISOLONE
     Dosage: 10 MG, QD ,AFTER BREAKFAST
     Route: 048
     Dates: start: 20170307, end: 20170403
  14. PREDONINE [Suspect]
     Active Substance: PREDNISOLONE
     Dosage: 5 MG, QD ,AFTER BREAKFAST
     Route: 048
     Dates: start: 20170404, end: 20171009
  15. PREDNISOLONE [Concomitant]
     Active Substance: PREDNISOLONE
     Indication: Aortitis
     Dosage: 4 MG, QD (AFTER BREAKFAST)
     Route: 048
     Dates: start: 20170404, end: 20170529
  16. PREDNISOLONE [Concomitant]
     Active Substance: PREDNISOLONE
     Dosage: 3 MG, QD, (AFTER BREAKFAST)
     Route: 048
     Dates: start: 20170530, end: 20170626
  17. PREDNISOLONE [Concomitant]
     Active Substance: PREDNISOLONE
     Dosage: 2 MG, QD, AFTER BREAKFAST
     Route: 048
     Dates: start: 20170627, end: 20170724
  18. PREDNISOLONE [Concomitant]
     Active Substance: PREDNISOLONE
     Dosage: 1 MG, QD, AFTER BREAKFAST
     Route: 048
     Dates: start: 20170725, end: 20170821
  19. PREDNISOLONE [Concomitant]
     Active Substance: PREDNISOLONE
     Dosage: 4 MG, QD, AFTER BREAKFAST
     Route: 048
     Dates: start: 20171010, end: 20171106
  20. PREDNISOLONE [Concomitant]
     Active Substance: PREDNISOLONE
     Dosage: 3 MG, QD, AFTER BREAKFAST
     Route: 048
     Dates: start: 20171107, end: 20171204
  21. PREDNISOLONE [Concomitant]
     Active Substance: PREDNISOLONE
     Dosage: 2 MG, QD, AFTER BREAKFAST
     Route: 048
     Dates: start: 20171205, end: 20180115
  22. PREDNISOLONE [Concomitant]
     Active Substance: PREDNISOLONE
     Dosage: 1 MG, QD, AFTER BREAKFAST
     Route: 048
     Dates: start: 20180116, end: 20180219
  23. CYCLOPHOSPHAMIDE [Concomitant]
     Active Substance: CYCLOPHOSPHAMIDE
     Indication: Invasive lobular breast carcinoma
     Dosage: 880 MILLIGRAM
     Route: 041
     Dates: start: 20161011, end: 20161011
  24. DOCETAXEL [Concomitant]
     Active Substance: DOCETAXEL
     Indication: Invasive lobular breast carcinoma
     Dosage: 110 MG
     Route: 041
     Dates: start: 20161011, end: 20161011
  25. GRANISETRON HYDROCHLORIDE [Concomitant]
     Active Substance: GRANISETRON HYDROCHLORIDE
     Indication: Product used for unknown indication
     Dosage: 3 MG
     Route: 041
     Dates: start: 20161011, end: 20161011
  26. RAMOSETRON HYDROCHLORIDE [Concomitant]
     Active Substance: RAMOSETRON HYDROCHLORIDE
     Indication: Nausea
     Dosage: 0.1 MG, PRN, AT THE TIME OF FEELING QUEASY
     Route: 048
     Dates: start: 20161012, end: 20161012
  27. ISOTONIC SODIUM CHLORIDE SOLUTION [Concomitant]
     Active Substance: SODIUM CHLORIDE
     Indication: Product used for unknown indication
     Dosage: UNK
     Route: 041
  28. CALCIUM CHLORIDE\POTASSIUM CHLORIDE\SODIUM ACETATE\SODIUM CHLORIDE [Concomitant]
     Active Substance: CALCIUM CHLORIDE\POTASSIUM CHLORIDE\SODIUM ACETATE\SODIUM CHLORIDE
     Indication: Product used for unknown indication
     Dosage: 500 MILLILITER
     Route: 041
     Dates: start: 20161020, end: 20161020
  29. LEVOFLOXACIN HEMIHYDRATE [Concomitant]
     Active Substance: LEVOFLOXACIN
     Indication: Product used for unknown indication
     Dosage: 500 MG, QD, AFTER BREAKFAST
     Route: 048
     Dates: start: 20161012, end: 20161016
  30. MAGNESIUM OXIDE [Concomitant]
     Active Substance: MAGNESIUM OXIDE
     Indication: Constipation
     Dosage: 330 MG, TID, AFTER BREAKFAST, LUNCH, AND DINNER
     Route: 048
     Dates: start: 20161012, end: 20161018
  31. CALONAL [Concomitant]
     Active Substance: ACETAMINOPHEN
     Indication: Aortitis
     Dosage: 400 MG, PRN (AT THE TIME OF PYREXIA)
     Route: 048
     Dates: start: 20161020, end: 20161020
  32. CALONAL [Concomitant]
     Active Substance: ACETAMINOPHEN
     Dosage: 400 MG, TID , AFTER BREAKFAST LUNCH AND DINNER
     Route: 048
     Dates: start: 20161024, end: 20161102
  33. LOXOPROFEN SODIUM [Concomitant]
     Active Substance: LOXOPROFEN SODIUM
     Indication: Aortitis
     Dosage: 60 MG, PRN, (AT THE TIME OF PYREXIA )
     Route: 048
     Dates: start: 20161021, end: 20161024
  34. LOXOPROFEN SODIUM [Concomitant]
     Active Substance: LOXOPROFEN SODIUM
     Dosage: 60 MG, PRN (AT THE TIME OF PAIN )
     Route: 048
     Dates: start: 20161022, end: 20161023
  35. MEROPENEM [Concomitant]
     Active Substance: MEROPENEM
     Indication: Aortitis
     Dosage: 0.5 G, BID
     Route: 041
     Dates: start: 20161022, end: 20161029
  36. VANCOMYCIN HYDROCHLORIDE [Concomitant]
     Active Substance: VANCOMYCIN HYDROCHLORIDE
     Indication: Aortitis
     Dosage: 1250 MILLIGRAM, QD
     Route: 041
     Dates: start: 20161022, end: 20161023
  37. VANCOMYCIN HYDROCHLORIDE [Concomitant]
     Active Substance: VANCOMYCIN HYDROCHLORIDE
     Dosage: 1500 MILLIGRAM, QD
     Route: 041
     Dates: start: 20161024, end: 20161024
  38. VANCOMYCIN HYDROCHLORIDE [Concomitant]
     Active Substance: VANCOMYCIN HYDROCHLORIDE
     Dosage: 1500 MILLIGRAM, BID
     Route: 041
     Dates: start: 20161025, end: 20161028
  39. VANCOMYCIN HYDROCHLORIDE [Concomitant]
     Active Substance: VANCOMYCIN HYDROCHLORIDE
     Dosage: 1500 MILLIGRAM, QD
     Route: 041
     Dates: start: 20161029, end: 20161029
  40. CLOPERASTINE HYDROCHLORIDE [Concomitant]
     Active Substance: CLOPERASTINE HYDROCHLORIDE
     Indication: Product used for unknown indication
     Dosage: 10 MG, TID (AFTER BREAKFAST ,LUNCH, AND DINNER)
     Route: 048
     Dates: start: 20161024, end: 20161120
  41. CLOPERASTINE HYDROCHLORIDE [Concomitant]
     Active Substance: CLOPERASTINE HYDROCHLORIDE
     Dosage: 10 MG, TID(IMMEDIATELY BEFORE BREAKFAST, LUNCH, AND DINNER)
     Route: 048
     Dates: start: 20161120, end: 20161128
  42. LANSOPRAZOLE [Concomitant]
     Active Substance: LANSOPRAZOLE
     Indication: Product used for unknown indication
     Dosage: 15 MG, QD, AFTER BREAKFAST
     Route: 048
     Dates: start: 20161027, end: 20161120
  43. LANSOPRAZOLE [Concomitant]
     Active Substance: LANSOPRAZOLE
     Dosage: 15 MG, QD (IMMEDIATELY BEFORE BREAKFAST)
     Route: 048
     Dates: start: 20161120, end: 20161212
  44. LANSOPRAZOLE [Concomitant]
     Active Substance: LANSOPRAZOLE
     Dosage: 15 MG, QD, AFTER BREAKFAST
     Route: 048
     Dates: start: 20161213, end: 20170305
  45. LANSOPRAZOLE [Concomitant]
     Active Substance: LANSOPRAZOLE
     Dosage: 15 MG, QD, AFTER BREAKFAST
     Route: 048
     Dates: start: 20170307
  46. AMINO ACIDS\DEXTROSE\ELECTROLYTES NOS\VITAMINS [Concomitant]
     Active Substance: AMINO ACIDS\DEXTROSE\ELECTROLYTES NOS\VITAMINS
     Indication: Product used for unknown indication
     Dosage: 500 ML, QD
     Route: 041
     Dates: start: 20161021, end: 20161021
  47. AMINO ACIDS\DEXTROSE\ELECTROLYTES NOS\VITAMINS [Concomitant]
     Active Substance: AMINO ACIDS\DEXTROSE\ELECTROLYTES NOS\VITAMINS
     Dosage: 1000 ML, QD
     Route: 041
     Dates: start: 20161022, end: 20161022
  48. AMINO ACIDS\DEXTROSE\ELECTROLYTES NOS\VITAMINS [Concomitant]
     Active Substance: AMINO ACIDS\DEXTROSE\ELECTROLYTES NOS\VITAMINS
     Dosage: 1000ML, 500ML, 500ML
     Route: 041
     Dates: start: 20161023, end: 20161023
  49. AMINO ACIDS\DEXTROSE\ELECTROLYTES NOS\VITAMINS [Concomitant]
     Active Substance: AMINO ACIDS\DEXTROSE\ELECTROLYTES NOS\VITAMINS
     Dosage: 2000 ML, QD
     Route: 041
     Dates: start: 20161024, end: 20161026
  50. AMINO ACIDS\DEXTROSE\ELECTROLYTES NOS\VITAMINS [Concomitant]
     Active Substance: AMINO ACIDS\DEXTROSE\ELECTROLYTES NOS\VITAMINS
     Dosage: 1000 ML, QD
     Route: 041
     Dates: start: 20161027, end: 20161027
  51. AMINO ACIDS\DEXTROSE\ELECTROLYTES NOS\VITAMINS [Concomitant]
     Active Substance: AMINO ACIDS\DEXTROSE\ELECTROLYTES NOS\VITAMINS
     Dosage: 500 ML, QD
     Route: 041
     Dates: start: 20161028, end: 20161028

REACTIONS (2)
  - Aortitis [Recovered/Resolved]
  - Steroid diabetes [Recovered/Resolved]

NARRATIVE: CASE EVENT DATE: 20161016
